FAERS Safety Report 18251694 (Version 1)
Quarter: 2020Q3

REPORT INFORMATION
  Report Type: Spontaneous
  Country: US (occurrence: US)
  Receive Date: 20200910
  Receipt Date: 20200910
  Transmission Date: 20201103
  Serious: No
  Sender: FDA-Public Use
  Company Number: US-GLENMARK PHARMACEUTICALS-2020GMK048046

PATIENT

DRUGS (2)
  1. ATOVAQUONE ORAL SUSPENSION USP [750 MG/5 ML] [Suspect]
     Active Substance: ATOVAQUONE
     Indication: PROPHYLAXIS
     Dosage: 10 MILLILITER, QD
     Route: 048
     Dates: start: 20200427, end: 2020
  2. ATOVAQUONE ORAL SUSPENSION USP [750 MG/5 ML] [Suspect]
     Active Substance: ATOVAQUONE
     Dosage: 10 MILLILITER, QD (RE?START)
     Route: 048
     Dates: start: 2020

REACTIONS (4)
  - Wrong technique in product usage process [Unknown]
  - Product taste abnormal [Unknown]
  - Product use complaint [Unknown]
  - No adverse event [Unknown]

NARRATIVE: CASE EVENT DATE: 20200427
